FAERS Safety Report 15531582 (Version 1)
Quarter: 2018Q4

REPORT INFORMATION
  Report Type: Spontaneous
  Country: JP (occurrence: JP)
  Receive Date: 20181019
  Receipt Date: 20181019
  Transmission Date: 20190205
  Serious: Yes (Other)
  Sender: FDA-Public Use
  Company Number: JP-009507513-1810JPN002003J

PATIENT
  Age: 72 Year
  Sex: Male

DRUGS (2)
  1. REBETOL [Suspect]
     Active Substance: RIBAVIRIN
     Indication: HEPATITIS VIRAL
     Dosage: UNK
     Route: 048
  2. SOVALDI [Suspect]
     Active Substance: SOFOSBUVIR
     Indication: HEPATITIS VIRAL
     Dosage: UNK
     Route: 048

REACTIONS (2)
  - Rhabdomyolysis [Unknown]
  - Condition aggravated [Unknown]
